FAERS Safety Report 20684691 (Version 3)
Quarter: 2022Q2

REPORT INFORMATION
  Report Type: Spontaneous
  Country: JP (occurrence: JP)
  Receive Date: 20220407
  Receipt Date: 20220520
  Transmission Date: 20220721
  Serious: Yes (Hospitalization, Other)
  Sender: FDA-Public Use
  Company Number: JP-BRISTOL-MYERS SQUIBB COMPANY-2022-015827

PATIENT
  Age: 82 Year
  Sex: Female
  Weight: 55 kg

DRUGS (8)
  1. ELIQUIS [Suspect]
     Active Substance: APIXABAN
     Indication: Cerebrovascular accident prophylaxis
     Route: 048
  2. ELIQUIS [Suspect]
     Active Substance: APIXABAN
     Indication: Cerebral infarction
     Dosage: 2 TIMES/DAY
     Route: 048
     Dates: start: 20160309
  3. CANDESARTAN CILEXETIL [Concomitant]
     Active Substance: CANDESARTAN CILEXETIL
     Indication: Hypertension
     Route: 048
     Dates: start: 20091221
  4. CILNIDIPINE [Concomitant]
     Active Substance: CILNIDIPINE
     Indication: Hypertension
     Route: 048
     Dates: start: 20091221
  5. TRICHLORMETHIAZIDE [Concomitant]
     Active Substance: TRICHLORMETHIAZIDE
     Indication: Hypertension
     Route: 048
     Dates: start: 20091221
  6. PILSICAINIDE HYDROCHLORIDE [Concomitant]
     Active Substance: PILSICAINIDE HYDROCHLORIDE
     Indication: Atrial fibrillation
     Dosage: 3 TIMES/DAY
     Route: 048
     Dates: start: 20110318
  7. CRESTOR [Concomitant]
     Active Substance: ROSUVASTATIN CALCIUM
     Indication: Hypercholesterolaemia
     Route: 048
     Dates: start: 20191225
  8. ALINAMIN F [Concomitant]
     Active Substance: FURSULTIAMINE HYDROCHLORIDE
     Indication: Neuropathy peripheral
     Dosage: 3 TIMES/DAY
     Route: 048
     Dates: start: 20150115

REACTIONS (2)
  - Cerebral haemorrhage [Recovering/Resolving]
  - Blood pressure abnormal [Recovering/Resolving]

NARRATIVE: CASE EVENT DATE: 20220201
